FAERS Safety Report 17662081 (Version 1)
Quarter: 2020Q2

REPORT INFORMATION
  Report Type: Other
  Country: MT (occurrence: MT)
  Receive Date: 20200413
  Receipt Date: 20200413
  Transmission Date: 20200713
  Serious: Yes (Life-Threatening, Hospitalization, Disabling)
  Sender: FDA-Public Use
  Company Number: MT-NOSTRUM LABORATORIES, INC.-2082733

PATIENT
  Age: 70 Year
  Sex: Female

DRUGS (3)
  1. DIGOXIN. [Interacting]
     Active Substance: DIGOXIN
     Route: 048
  2. CLARITHROMYCIN EXTENDED RELEASE [Suspect]
     Active Substance: CLARITHROMYCIN
     Indication: HELICOBACTER INFECTION
     Route: 048
  3. WARFARIN SODIUM. [Concomitant]
     Active Substance: WARFARIN SODIUM
     Route: 048

REACTIONS (4)
  - Arrhythmia [Recovered/Resolved]
  - Drug interaction [Recovered/Resolved]
  - Hyperkalaemia [Recovered/Resolved]
  - Acute kidney injury [Recovered/Resolved with Sequelae]
